FAERS Safety Report 11458573 (Version 1)
Quarter: 2015Q3

REPORT INFORMATION
  Report Type: Spontaneous
  Country: US (occurrence: US)
  Receive Date: 20150904
  Receipt Date: 20150904
  Transmission Date: 20151125
  Serious: Yes (Other)
  Sender: FDA-Public Use
  Company Number: US-RECORDATI RARE DISEASES-US-R13005-15-00131

PATIENT
  Age: 35 Year
  Sex: Male

DRUGS (1)
  1. METHAMPHETAMINE [Suspect]
     Active Substance: METHAMPHETAMINE
     Indication: PRODUCT USED FOR UNKNOWN INDICATION
     Route: 065

REACTIONS (7)
  - Cardiac failure acute [Recovering/Resolving]
  - Drug abuse [Recovered/Resolved]
  - Pulmonary embolism [Recovering/Resolving]
  - Cardiotoxicity [Recovering/Resolving]
  - Cardiomyopathy [Not Recovered/Not Resolved]
  - Left ventricular dysfunction [Recovering/Resolving]
  - Cardiac ventricular thrombosis [Recovering/Resolving]
